FAERS Safety Report 9081664 (Version 1)
Quarter: 2013Q1

REPORT INFORMATION
  Report Type: Report from Study
  Country: US (occurrence: US)
  Receive Date: 20130130
  Receipt Date: 20130130
  Transmission Date: 20140127
  Serious: No
  Sender: FDA-Public Use
  Company Number: US-ABBOTT-12P-163-0967997-00

PATIENT
  Age: 73 Year
  Sex: Female

DRUGS (11)
  1. HUMIRA 40 MG/0.8 ML PEN [Suspect]
     Indication: CROHN^S DISEASE
     Dates: start: 20120716
  2. ALLOPURINOL [Concomitant]
     Indication: GOUT
     Dosage: 300MG DAILY
  3. METOPROLOL [Concomitant]
     Indication: BLOOD PRESSURE
  4. LAMOTRIGINE [Concomitant]
     Indication: CEREBROVASCULAR ACCIDENT
  5. DIGOXIN [Concomitant]
     Indication: CARDIAC VALVE DISEASE
     Dosage: 0.125MG DAILY
  6. FUROSEMIDE [Concomitant]
     Indication: PRODUCT USED FOR UNKNOWN INDICATION
     Dosage: 40MG DAILY AS A WATER PILL
  7. LEVOTHYROXINE [Concomitant]
     Indication: HYPOTHYROIDISM
     Dosage: 75MCG DAILY
  8. WARFARIN [Concomitant]
     Indication: CARDIAC DISORDER
     Dosage: 5MG DAILY
  9. BRIMONIDINE [Concomitant]
     Indication: CATARACT OPERATION
     Dosage: EYE DROP - EACH EYE TWICE DAILY
  10. ASA [Concomitant]
     Indication: PROPHYLAXIS
     Dosage: 81MG DAILY
  11. FISH OIL [Concomitant]
     Indication: MEDICAL DIET
     Dosage: DAILY

REACTIONS (4)
  - Diarrhoea [Not Recovered/Not Resolved]
  - Influenza like illness [Not Recovered/Not Resolved]
  - Pain [Not Recovered/Not Resolved]
  - Nausea [Not Recovered/Not Resolved]
